FAERS Safety Report 18988276 (Version 1)
Quarter: 2021Q1

REPORT INFORMATION
  Report Type: Spontaneous
  Country: US (occurrence: US)
  Receive Date: 20210309
  Receipt Date: 20210309
  Transmission Date: 20210420
  Serious: No
  Sender: FDA-Public Use
  Company Number: US-TAKEDA-2021TUS012714

PATIENT
  Sex: Female
  Weight: 100 kg

DRUGS (3)
  1. CROMOLYN SODIUM. [Concomitant]
     Active Substance: CROMOLYN SODIUM
     Indication: MAST CELL ACTIVATION SYNDROME
     Route: 048
  2. CROMOLYN SODIUM. [Concomitant]
     Active Substance: CROMOLYN SODIUM
     Dosage: UNK
     Route: 045
  3. MOTEGRITY [Suspect]
     Active Substance: PRUCALOPRIDE SUCCINATE
     Indication: CONSTIPATION
     Dosage: 1 MILLIGRAM, QD
     Route: 065
     Dates: start: 20210223

REACTIONS (1)
  - Nausea [Unknown]
